FAERS Safety Report 17960300 (Version 1)
Quarter: 2020Q2

REPORT INFORMATION
  Report Type: Spontaneous
  Country: US (occurrence: US)
  Receive Date: 20200628
  Receipt Date: 20200628
  Transmission Date: 20200714
  Serious: Yes (Hospitalization)
  Sender: FDA-Public Use
  Company Number: None

PATIENT
  Age: 42 Year
  Sex: Female

DRUGS (7)
  1. THIAMINE. [Concomitant]
     Active Substance: THIAMINE
  2. LORAZEPAM. [Concomitant]
     Active Substance: LORAZEPAM
  3. COPAXONE [Suspect]
     Active Substance: GLATIRAMER ACETATE
     Indication: MULTIPLE SCLEROSIS
     Route: 058
     Dates: start: 20200213
  4. EFLUNOMIDE [Concomitant]
  5. AMITRIOTYINE [Concomitant]
  6. VICODIN [Concomitant]
     Active Substance: ACETAMINOPHEN\HYDROCODONE BITARTRATE
  7. SUMARTRIPTAN [Concomitant]

REACTIONS (4)
  - Adrenal insufficiency [None]
  - Sepsis [None]
  - Therapy interrupted [None]
  - Pyrexia [None]

NARRATIVE: CASE EVENT DATE: 202002
